FAERS Safety Report 4535598-6 (Version None)
Quarter: 2004Q4

REPORT INFORMATION
  Report Type: 
  Country: None (occurrence: None)
  Receive Date: 20041214
  Receipt Date: 20040831
  Transmission Date: 20050328
  Serious: No
  Sender: FDA-Public Use
  Company Number: USA040977065

PATIENT
  Age: 57 Year
  Sex: Male

DRUGS (3)
  1. CIALIS [Suspect]
     Indication: ERECTILE DYSFUNCTION
     Dosage: 20 MG/1
     Dates: start: 20040831
  2. VIAGRA [Concomitant]
  3. LEVITRA [Concomitant]

REACTIONS (2)
  - DRUG INEFFECTIVE [None]
  - FLUSHING [None]
